FAERS Safety Report 13299221 (Version 1)
Quarter: 2017Q1

REPORT INFORMATION
  Report Type: Spontaneous
  Country: JP (occurrence: JP)
  Receive Date: 20170306
  Receipt Date: 20170306
  Transmission Date: 20170428
  Serious: Yes (Death)
  Sender: FDA-Public Use
  Company Number: JP-PFIZER INC-2017056729

PATIENT
  Age: 50 Year
  Sex: Female

DRUGS (1)
  1. ANAEMETRO 500MG [Suspect]
     Active Substance: METRONIDAZOLE
     Indication: PELVIC INFLAMMATORY DISEASE
     Dosage: 1500 MG, DAILY
     Route: 041
     Dates: start: 20170127, end: 20170209

REACTIONS (4)
  - Cervix carcinoma stage IV [Fatal]
  - Malignant neoplasm progression [Fatal]
  - Disorientation [Unknown]
  - Restlessness [Unknown]

NARRATIVE: CASE EVENT DATE: 20170205
